FAERS Safety Report 9381711 (Version 1)
Quarter: 2013Q3

REPORT INFORMATION
  Report Type: Spontaneous
  Country: US (occurrence: US)
  Receive Date: 20130703
  Receipt Date: 20130703
  Transmission Date: 20140515
  Serious: No
  Sender: FDA-Public Use
  Company Number: US-BAYER-2013-081505

PATIENT
  Age: 65 Year
  Sex: Female
  Weight: 68.03 kg

DRUGS (2)
  1. ALEVE GELCAPS [Suspect]
     Dosage: 2 DF, ONCE
     Route: 048
     Dates: start: 20130614, end: 20130625
  2. SYNTHROID [Concomitant]

REACTIONS (1)
  - Nightmare [None]
